FAERS Safety Report 9457320 (Version 6)
Quarter: 2016Q3

REPORT INFORMATION
  Report Type: Report from Study
  Country: TW (occurrence: TW)
  Receive Date: 20130814
  Receipt Date: 20160818
  Transmission Date: 20161109
  Serious: Yes (Death, Hospitalization)
  Sender: FDA-Public Use
  Company Number: PHHY2013TW086214

PATIENT
  Age: 84 Year
  Sex: Male
  Weight: 52 kg

DRUGS (7)
  1. TASIGNA [Suspect]
     Active Substance: NILOTINIB
     Dosage: 300 MG, UNK
     Route: 048
     Dates: start: 20130911, end: 20131013
  2. ASPARIN [Concomitant]
     Indication: CORONARY ARTERY DISEASE
     Dosage: 100 MG, UNK
     Route: 048
     Dates: start: 20130805, end: 20130807
  3. KETOROLAC [Concomitant]
     Active Substance: KETOROLAC\KETOROLAC TROMETHAMINE
     Indication: OSTEOARTHRITIS
     Dosage: 30 G, UNK
     Route: 042
     Dates: start: 20130805, end: 20130805
  4. ULTRACET [Concomitant]
     Active Substance: ACETAMINOPHEN\TRAMADOL HYDROCHLORIDE
     Indication: OSTEOARTHRITIS
     Dosage: 1 DF, UNK
     Route: 048
     Dates: start: 20130802, end: 20130805
  5. TASIGNA [Suspect]
     Active Substance: NILOTINIB
     Indication: CHRONIC MYELOID LEUKAEMIA
     Dosage: 600 MG, DAILY
     Route: 048
     Dates: start: 20130621, end: 20130711
  6. TASIGNA [Suspect]
     Active Substance: NILOTINIB
     Dosage: 300 MG, UNK
     Route: 048
     Dates: start: 20130712, end: 20130722
  7. TASIGNA [Suspect]
     Active Substance: NILOTINIB
     Dosage: 600 MG, UNK
     Route: 048
     Dates: start: 20130723, end: 20130805

REACTIONS (8)
  - Pneumonia [Recovering/Resolving]
  - Pyrexia [Recovering/Resolving]
  - Fall [Recovered/Resolved]
  - Diarrhoea [Recovering/Resolving]
  - Occult blood [Recovering/Resolving]
  - Productive cough [Recovering/Resolving]
  - Gastrooesophageal reflux disease [Fatal]
  - Aspiration [Recovering/Resolving]

NARRATIVE: CASE EVENT DATE: 20130721
